FAERS Safety Report 25471347 (Version 2)
Quarter: 2025Q3

REPORT INFORMATION
  Report Type: Spontaneous
  Country: GB (occurrence: GB)
  Receive Date: 20250624
  Receipt Date: 20250714
  Transmission Date: 20251021
  Serious: Yes (Hospitalization, Other)
  Sender: GLAXOSMITHKLINE
  Company Number: GB-GLAXOSMITHKLINE INC-GB2025076329

PATIENT
  Age: 40 Year
  Sex: Female

DRUGS (16)
  1. ZANAMIVIR [Suspect]
     Active Substance: ZANAMIVIR
     Indication: Influenza
     Dosage: 600 MG, BID
  2. ALBUMIN HUMAN [Concomitant]
     Active Substance: ALBUMIN HUMAN
     Indication: Hypotension
  3. HEPARIN [Concomitant]
     Active Substance: HEPARIN SODIUM
     Indication: Renal replacement therapy
  4. HYDROCORTONE [Concomitant]
     Active Substance: HYDROCORTISONE
     Indication: Sepsis
  5. LEVOFLOXACIN [Concomitant]
     Active Substance: LEVOFLOXACIN
     Indication: Infection
  6. POTASSIUM CHLORIDE [Concomitant]
     Active Substance: POTASSIUM CHLORIDE
     Indication: Hypokalaemia
  7. ALFENTANIL [Concomitant]
     Active Substance: ALFENTANIL
     Indication: Sedative therapy
  8. ARGIPRESSIN [Concomitant]
     Active Substance: ARGIPRESSIN
     Indication: Hypotension
  9. CARBOCYSTEINE [Concomitant]
     Active Substance: CARBOCYSTEINE
     Indication: Sputum abnormal
  10. CISATRACURIUM [Concomitant]
     Active Substance: CISATRACURIUM
     Indication: Paraesthesia
  11. CLARITHROMYCIN [Concomitant]
     Active Substance: CLARITHROMYCIN
     Indication: Infection
  12. CLINDAMYCIN [Concomitant]
     Active Substance: CLINDAMYCIN
     Indication: Infection
  13. METOCLOPRAMIDE [Concomitant]
     Active Substance: METOCLOPRAMIDE
     Indication: Gastrointestinal disorder
  14. NOREPINEPHRINE BITARTRATE [Concomitant]
     Active Substance: NOREPINEPHRINE BITARTRATE
     Indication: Hypotension
  15. OMEPRAZOLE [Concomitant]
     Active Substance: OMEPRAZOLE
     Indication: Prophylaxis
  16. PROPOFOL [Concomitant]
     Active Substance: PROPOFOL
     Indication: Sedative therapy

REACTIONS (2)
  - Acute kidney injury [Recovered/Resolved]
  - Septic shock [Unknown]

NARRATIVE: CASE EVENT DATE: 20240203
